FAERS Safety Report 5254129-9 (Version None)
Quarter: 2007Q1

REPORT INFORMATION
  Report Type: 
  Country: None (occurrence: None)
  Receive Date: 20070302
  Receipt Date: 20070216
  Transmission Date: 20070707
  Serious: Yes (Death, Hospitalization)
  Sender: FDA-Public Use
  Company Number: FR-AMGEN-UK211666

PATIENT
  Age: 60 Year
  Sex: Male

DRUGS (3)
  1. NEULASTA [Suspect]
     Indication: CHEMOTHERAPY
     Route: 058
     Dates: start: 20070205, end: 20070205
  2. CISPLATIN [Concomitant]
     Route: 065
     Dates: start: 20070129
  3. ETOPOSIDE [Concomitant]
     Route: 065
     Dates: start: 20070129

REACTIONS (5)
  - GENERAL PHYSICAL HEALTH DETERIORATION [None]
  - PANCYTOPENIA [None]
  - PYREXIA [None]
  - SEPSIS [None]
  - VOMITING [None]
